FAERS Safety Report 12293672 (Version 2)
Quarter: 2016Q2

REPORT INFORMATION
  Report Type: Other
  Country: CN (occurrence: CN)
  Receive Date: 20160421
  Receipt Date: 20160602
  Transmission Date: 20160815
  Serious: Yes (Death, Hospitalization)
  Sender: FDA-Public Use
  Company Number: CN-SPECTRUM PHARMACEUTICALS, INC.-16-P-CN-00082

PATIENT
  Age: 53 Year
  Sex: Male
  Weight: 49 kg

DRUGS (11)
  1. INDOMETACIN [Concomitant]
     Active Substance: INDOMETHACIN
     Dosage: 0.03 UNK
     Route: 054
     Dates: start: 20160327, end: 20160328
  2. INDOMETACIN SODIUM [Concomitant]
     Indication: PYREXIA
     Dosage: 0.03 G, UNK
     Route: 054
     Dates: start: 20160327, end: 20160328
  3. G-CSF [Concomitant]
     Active Substance: GRANULOCYTE COLONY-STIMULATING FACTOR NOS
     Indication: NEUTROPHIL COUNT DECREASED
  4. INDOMETACIN [Concomitant]
     Active Substance: INDOMETHACIN
     Indication: TUMOUR ASSOCIATED FEVER
     Dosage: 0.05 G, UNK
     Route: 054
     Dates: start: 20160326, end: 20160326
  5. LEVOFLOXACIN MESYLATE [Concomitant]
     Active Substance: LEVOFLOXACIN
     Indication: INFECTION PROPHYLAXIS
     Dosage: 0.4 G, UNK
     Route: 042
     Dates: start: 20160325, end: 20160327
  6. LYSINE ASPIRIN [Concomitant]
     Active Substance: ASPIRIN DL-LYSINE
     Dosage: 0.5 G, UNK
     Route: 030
     Dates: start: 20160325, end: 20160325
  7. PRALATREXATE [Suspect]
     Active Substance: PRALATREXATE
     Indication: PERIPHERAL T-CELL LYMPHOMA UNSPECIFIED
     Dosage: 30 MG/M2, QW
     Route: 042
     Dates: start: 20160324, end: 20160401
  8. INDOMETACIN SODIUM [Concomitant]
     Dosage: .05 UNK, UNK
     Route: 054
     Dates: start: 20160326, end: 20160326
  9. METOCLOPRAMIDE HCL                 /00041902/ [Concomitant]
     Indication: ABDOMINAL DISTENSION
     Dosage: 10 MG, UNK
     Route: 030
     Dates: start: 20160325, end: 20160325
  10. G-CSF [Concomitant]
     Active Substance: GRANULOCYTE COLONY-STIMULATING FACTOR NOS
     Indication: WHITE BLOOD CELL COUNT DECREASED
     Dosage: 150 UG, UNK
     Route: 058
     Dates: start: 20160326, end: 20160328
  11. LYSINE ASPIRIN [Concomitant]
     Active Substance: ASPIRIN DL-LYSINE
     Indication: TUMOUR ASSOCIATED FEVER
     Dosage: 0.5 G, UNK
     Route: 042
     Dates: start: 20160325, end: 20160326

REACTIONS (2)
  - Febrile neutropenia [Fatal]
  - Platelet count decreased [Not Recovered/Not Resolved]

NARRATIVE: CASE EVENT DATE: 20160404
